FAERS Safety Report 9438584 (Version 3)
Quarter: 2014Q3

REPORT INFORMATION
  Report Type: Spontaneous
  Country: US (occurrence: US)
  Receive Date: 20130802
  Receipt Date: 20140722
  Transmission Date: 20150326
  Serious: Yes (Hospitalization, Other)
  Sender: FDA-Public Use
  Company Number: US-009507513-1307USA017154

PATIENT
  Sex: Female
  Weight: 77.98 kg

DRUGS (1)
  1. NUVARING [Suspect]
     Active Substance: ETHINYL ESTRADIOL\ETONOGESTREL
     Indication: CONTRACEPTION
     Dosage: UNK
     Route: 067
     Dates: start: 200812, end: 20110306

REACTIONS (26)
  - Asthma [Unknown]
  - Ovarian vein thrombosis [Unknown]
  - Coagulopathy [Unknown]
  - Nephrolithiasis [Not Recovered/Not Resolved]
  - Embolism venous [Unknown]
  - Dermatitis allergic [Recovered/Resolved]
  - Convulsion [Unknown]
  - Pyelonephritis chronic [Unknown]
  - Umbilical hernia [Unknown]
  - Haemorrhagic ovarian cyst [Unknown]
  - Maternal exposure before pregnancy [Unknown]
  - Ovarian cyst [Unknown]
  - Abortion [Unknown]
  - Umbilical hernia repair [Unknown]
  - Syncope [Unknown]
  - Cardiac murmur [Unknown]
  - Loss of consciousness [Unknown]
  - Hyperemesis gravidarum [Unknown]
  - Drug intolerance [Unknown]
  - Ovarian cyst [Unknown]
  - Nephroureterectomy [Unknown]
  - Umbilical hernia [Unknown]
  - Hypersensitivity [Unknown]
  - Abdominal pain upper [Unknown]
  - Fall [Unknown]
  - Iron deficiency anaemia [Unknown]

NARRATIVE: CASE EVENT DATE: 201101
